FAERS Safety Report 4968699-9 (Version None)
Quarter: 2006Q2

REPORT INFORMATION
  Report Type: 
  Country: None (occurrence: None)
  Receive Date: 20060411
  Receipt Date: 20051206
  Transmission Date: 20061013
  Serious: Yes (Other)
  Sender: FDA-Public Use
  Company Number: US-GLAXOSMITHKLINE-A0584849A

PATIENT
  Sex: Male

DRUGS (1)
  1. TIMENTIN [Suspect]
     Route: 042
     Dates: start: 20050101, end: 20050101

REACTIONS (1)
  - BLOOD BILIRUBIN INCREASED [None]
